FAERS Safety Report 15067725 (Version 1)
Quarter: 2018Q2

REPORT INFORMATION
  Report Type: Spontaneous
  Country: US (occurrence: US)
  Receive Date: 20180606
  Receipt Date: 20180606
  Transmission Date: 20180711
  Serious: Yes (Disabling)
  Sender: FDA-Public Use
  Company Number: None

PATIENT
  Age: 50 Year
  Sex: Male
  Weight: 88.65 kg

DRUGS (6)
  1. GENERIC CLARITAN D (LORATADINE/PSEUDOEPHEDRINE) ` [Suspect]
     Active Substance: LORATADINE\PSEUDOEPHEDRINE SULFATE
     Indication: MULTIPLE ALLERGIES
     Route: 048
     Dates: start: 20120606, end: 20180606
  2. ALBUTEROL SULPHATE [Concomitant]
     Active Substance: ALBUTEROL
  3. GENERIC CLARITAN D (LORATADINE/PSEUDOEPHEDRINE) ` [Suspect]
     Active Substance: LORATADINE\PSEUDOEPHEDRINE SULFATE
     Indication: ALLERGY TO ANIMAL
     Route: 048
     Dates: start: 20120606, end: 20180606
  4. LOW-DOSE ASPIRIN [Concomitant]
     Active Substance: ASPIRIN
  5. GENERIC CLARITAN D (LORATADINE/PSEUDOEPHEDRINE) ` [Suspect]
     Active Substance: LORATADINE\PSEUDOEPHEDRINE SULFATE
     Indication: SEASONAL ALLERGY
     Route: 048
     Dates: start: 20120606, end: 20180606
  6. MULTIVITAMIN [Concomitant]
     Active Substance: VITAMINS

REACTIONS (6)
  - Drug ineffective [None]
  - Sneezing [None]
  - Eye pruritus [None]
  - Rhinorrhoea [None]
  - Drug dose omission [None]
  - Suspected counterfeit product [None]

NARRATIVE: CASE EVENT DATE: 20171001
